FAERS Safety Report 25373244 (Version 1)
Quarter: 2025Q2

REPORT INFORMATION
  Report Type: Spontaneous
  Country: US (occurrence: US)
  Receive Date: 20250529
  Receipt Date: 20250529
  Transmission Date: 20250716
  Serious: No
  Sender: BIOVITRUM
  Company Number: US-BIOVITRUM-2025-US-007395

PATIENT

DRUGS (1)
  1. PALIFERMIN [Suspect]
     Active Substance: PALIFERMIN
     Indication: Graft versus host disease
     Route: 042

REACTIONS (1)
  - Stomatitis [Unknown]
